FAERS Safety Report 11129984 (Version 1)
Quarter: 2015Q2

REPORT INFORMATION
  Report Type: Spontaneous
  Country: BR (occurrence: BR)
  Receive Date: 20150521
  Receipt Date: 20150521
  Transmission Date: 20150821
  Serious: Yes (Other)
  Sender: FDA-Public Use
  Company Number: PHHY2013BR166837

PATIENT
  Age: 64 Year
  Sex: Female

DRUGS (3)
  1. AFINITOR [Suspect]
     Active Substance: EVEROLIMUS
     Dosage: 5 MG, QD
     Route: 065
  2. SANDOSTATIN LAR DEPOT [Suspect]
     Active Substance: OCTREOTIDE ACETATE
     Indication: NEUROENDOCRINE TUMOUR
     Route: 065
     Dates: start: 201011
  3. AFINITOR [Suspect]
     Active Substance: EVEROLIMUS
     Indication: NEUROENDOCRINE TUMOUR
     Dosage: 10 MG, QD
     Route: 065

REACTIONS (12)
  - Diarrhoea [Unknown]
  - Abdominal pain [Unknown]
  - Flushing [Unknown]
  - Stomatitis [Recovered/Resolved]
  - Malignant neoplasm progression [Unknown]
  - Lymphadenopathy [Unknown]
  - Blood chromogranin A increased [Unknown]
  - Gastrointestinal toxicity [Unknown]
  - Pyrexia [Unknown]
  - Myalgia [Unknown]
  - Frequent bowel movements [Unknown]
  - Rash [Recovered/Resolved]

NARRATIVE: CASE EVENT DATE: 201111
